FAERS Safety Report 10081672 (Version 1)
Quarter: 2014Q2

REPORT INFORMATION
  Report Type: Spontaneous
  Country: US (occurrence: US)
  Receive Date: 20140416
  Receipt Date: 20140416
  Transmission Date: 20141212
  Serious: Yes (Other)
  Sender: FDA-Public Use
  Company Number: US-ASTRAZENECA-2014SE24604

PATIENT
  Age: 70 Year
  Sex: Female

DRUGS (6)
  1. LISINOPRIL [Suspect]
     Route: 048
     Dates: start: 201106
  2. DIOVAN HCT [Concomitant]
     Indication: BLOOD PRESSURE ABNORMAL
  3. GLUCOPHAGE [Concomitant]
     Indication: DIABETES MELLITUS
  4. METFORMIN [Concomitant]
     Indication: BLOOD PRESSURE ABNORMAL
  5. COREG [Concomitant]
     Indication: BLOOD PRESSURE ABNORMAL
  6. GENERIC MEDICATION [Concomitant]

REACTIONS (2)
  - Blood pressure increased [Unknown]
  - Drug ineffective [Unknown]
